FAERS Safety Report 8565691-2 (Version None)
Quarter: 2012Q3

REPORT INFORMATION
  Report Type: 
  Country: None (occurrence: None)
  Receive Date: 20120803
  Receipt Date: 20111007
  Transmission Date: 20120928
  Serious: No
  Sender: FDA-Public Use
  Company Number: US-ABBOTT-10P-163-0655174-00

PATIENT
  Sex: Female
  Weight: 58.112 kg

DRUGS (9)
  1. SINGULAIR [Concomitant]
     Indication: ASTHMA
     Route: 048
  2. NIASPAN [Suspect]
     Indication: BLOOD TRIGLYCERIDES INCREASED
     Dosage: AT BEDTIME
     Dates: start: 20100401, end: 20110601
  3. ZOCOR [Suspect]
     Indication: PRODUCT USED FOR UNKNOWN INDICATION
     Dates: start: 20100401, end: 20100601
  4. BENICAR [Concomitant]
     Indication: HYPERTENSION
  5. CALCIUM [Concomitant]
     Indication: PRODUCT USED FOR UNKNOWN INDICATION
     Route: 048
  6. NIASPAN [Suspect]
     Dosage: AT BEDTIME
     Dates: start: 20100501, end: 20100601
  7. FLUTICASONE PROPIONATE [Concomitant]
     Indication: ASTHMA
     Route: 055
  8. FORTE [Concomitant]
     Indication: OSTEOPOROSIS
     Route: 050
     Dates: start: 20080101
  9. FISH OIL [Concomitant]
     Indication: PRODUCT USED FOR UNKNOWN INDICATION
     Route: 048

REACTIONS (10)
  - MUSCLE TIGHTNESS [None]
  - DIZZINESS [None]
  - WHEEZING [None]
  - MUSCLE ATROPHY [None]
  - VISUAL IMPAIRMENT [None]
  - MYALGIA [None]
  - ASTHENIA [None]
  - HEPATIC ENZYME INCREASED [None]
  - DYSPNOEA [None]
  - WEIGHT DECREASED [None]
